FAERS Safety Report 4733298-0 (Version None)
Quarter: 2005Q3

REPORT INFORMATION
  Report Type: 
  Country: None (occurrence: None)
  Receive Date: 20050725
  Receipt Date: 20041104
  Transmission Date: 20060218
  Serious: Yes (Death)
  Sender: FDA-Public Use
  Company Number: USA-2004-0017521

PATIENT
  Age: 48 Year
  Sex: Male

DRUGS (12)
  1. MS CONTIN [Suspect]
     Dosage: 30 MG, TID, ORAL
     Route: 048
     Dates: start: 20021126, end: 20040703
  2. DURAGESIC-100 [Suspect]
     Indication: PAIN
     Dosage: 100 MCG, SEE TEXT, TRANSDERMAL
     Route: 062
     Dates: start: 20020503, end: 20040703
  3. ALCOHOL (ETHANOL) [Suspect]
  4. SOMA [Suspect]
     Indication: BACK PAIN
     Dosage: 350 MG, QID, ORAL
     Route: 048
     Dates: start: 20020503, end: 20040703
  5. MEPROBAMATE [Suspect]
  6. EPHEDRINE (EPHEDRINE) [Suspect]
  7. BROMPHENIRAMINE [Suspect]
  8. CYCLOBENZAPRINE HCL [Suspect]
  9. METHADONE (METHADONE) [Suspect]
     Dosage: 20 MG, TID, ORAL
     Route: 048
     Dates: start: 20021126, end: 20040703
  10. CAFFEINE (CAFFEINE) [Suspect]
  11. ELAVIL [Concomitant]
  12. CLARITIN [Concomitant]

REACTIONS (2)
  - ACCIDENTAL OVERDOSE [None]
  - MULTIPLE DRUG OVERDOSE [None]
